FAERS Safety Report 17001608 (Version 2)
Quarter: 2019Q4

REPORT INFORMATION
  Report Type: Spontaneous
  Country: US (occurrence: US)
  Receive Date: 20191106
  Receipt Date: 20191119
  Transmission Date: 20200122
  Serious: Yes (Hospitalization, Other)
  Sender: FDA-Public Use
  Company Number: US-VISTAPHARM, INC.-VER201910-001202

PATIENT
  Age: 36 Year
  Sex: Female

DRUGS (2)
  1. FOSPHENYTOIN [Concomitant]
     Active Substance: FOSPHENYTOIN
     Indication: PRODUCT USED FOR UNKNOWN INDICATION
     Dosage: FOSPHENYTOIN (100MG PE/2 ML) 2 ML INTRAVENOUSLY THREE TIMES A DAY
     Route: 042
  2. PHENYTOIN. [Suspect]
     Active Substance: PHENYTOIN
     Indication: PRODUCT USED FOR UNKNOWN INDICATION
     Dosage: 200MG, THREE TIMES A DAY
     Route: 048

REACTIONS (4)
  - Ileus [Recovered/Resolved]
  - Toxicity to various agents [Unknown]
  - Bradycardia [Recovering/Resolving]
  - Acute respiratory failure [Unknown]
